FAERS Safety Report 7821305-8 (Version None)
Quarter: 2011Q4

REPORT INFORMATION
  Report Type: 
  Country: None (occurrence: None)
  Receive Date: 20111018
  Receipt Date: 20100902
  Transmission Date: 20120403
  Serious: No
  Sender: FDA-Public Use
  Company Number: US-ASTRAZENECA-2010SE41514

PATIENT
  Age: 54 Year
  Sex: Female
  Weight: 88.5 kg

DRUGS (1)
  1. SYMBICORT [Suspect]
     Indication: CHRONIC OBSTRUCTIVE PULMONARY DISEASE
     Dosage: 160 MCG, BID
     Route: 055

REACTIONS (5)
  - HEART RATE INCREASED [None]
  - HEADACHE [None]
  - TREMOR [None]
  - ABDOMINAL PAIN UPPER [None]
  - RESPIRATORY RATE INCREASED [None]
